FAERS Safety Report 4981812-2 (Version None)
Quarter: 2006Q2

REPORT INFORMATION
  Report Type: 
  Country: None (occurrence: None)
  Receive Date: 20060425
  Receipt Date: 20060412
  Transmission Date: 20061013
  Serious: Yes (Death, Hospitalization)
  Sender: FDA-Public Use
  Company Number: UG-GLAXOSMITHKLINE-B0420770A

PATIENT
  Age: 50 Year
  Sex: Female

DRUGS (4)
  1. COMBIVIR [Suspect]
     Indication: HIV INFECTION
     Dosage: 1TAB TWICE PER DAY
     Route: 048
     Dates: start: 20031106, end: 20031230
  2. TENOFOVIR [Suspect]
     Indication: HIV INFECTION
     Dosage: 300MG PER DAY
     Route: 048
     Dates: start: 20031106, end: 20031230
  3. CO-TRIMOXAZOLE [Suspect]
  4. LOPERAMIDE [Concomitant]

REACTIONS (14)
  - ANAEMIA [None]
  - ANOREXIA [None]
  - DIARRHOEA [None]
  - DYSPNOEA EXERTIONAL [None]
  - FATIGUE [None]
  - KAPOSI'S SARCOMA [None]
  - LEUKOPENIA [None]
  - MALAISE [None]
  - MUCOSAL DISCOLOURATION [None]
  - NEUTROPENIA [None]
  - OEDEMA PERIPHERAL [None]
  - PANCYTOPENIA [None]
  - PYREXIA [None]
  - SEPSIS [None]
